FAERS Safety Report 16066828 (Version 1)
Quarter: 2019Q1

REPORT INFORMATION
  Report Type: Spontaneous
  Country: US (occurrence: US)
  Receive Date: 20190212
  Receipt Date: 20190212
  Transmission Date: 20190418
  Serious: Yes (Hospitalization)
  Sender: FDA-Public Use
  Company Number: None

PATIENT
  Age: 59 Year
  Sex: Female
  Weight: 65.9 kg

DRUGS (6)
  1. ACYCLOVIR. [Concomitant]
     Active Substance: ACYCLOVIR
  2. POSACONAZOLE [Concomitant]
     Active Substance: POSACONAZOLE
  3. VALCYTE [Concomitant]
     Active Substance: VALGANCICLOVIR HYDROCHLORIDE
  4. YESCARTA [Suspect]
     Active Substance: AXICABTAGENE CILOLEUCEL
     Indication: DIFFUSE LARGE B-CELL LYMPHOMA
     Dosage: 2X10^6 CAR T CELLS; ONE TIME DOSE IV INFUSION?
     Route: 042
     Dates: start: 20181210
  5. KEPPRA [Concomitant]
     Active Substance: LEVETIRACETAM
  6. RIBAVARIN [Concomitant]
     Active Substance: RIBAVIRIN

REACTIONS (8)
  - Adrenal insufficiency [None]
  - Pseudomonal bacteraemia [None]
  - Pneumonia bacterial [None]
  - Sepsis [None]
  - Pneumonia respiratory syncytial viral [None]
  - Cytomegalovirus infection [None]
  - Infection reactivation [None]
  - Neutropenia [None]

NARRATIVE: CASE EVENT DATE: 20190122
